FAERS Safety Report 4811420-5 (Version None)
Quarter: 2005Q4

REPORT INFORMATION
  Report Type: 
  Country: None (occurrence: None)
  Receive Date: 20051027
  Receipt Date: 20051025
  Transmission Date: 20060501
  Serious: Yes (Hospitalization, Disabling, Other)
  Sender: FDA-Public Use
  Company Number: PHRM2005FR02833

PATIENT
  Age: 17 Year
  Sex: Female
  Weight: 45 kg

DRUGS (6)
  1. NEGRAM POWDER [Suspect]
     Indication: PYELONEPHRITIS
     Dosage: 1 DF, QD
     Route: 048
     Dates: start: 20050608, end: 20050630
  2. CELLCEPT [Concomitant]
     Indication: RENAL TRANSPLANT
     Dosage: 750 MG, BID
  3. CORTANCYL [Concomitant]
     Indication: RENAL TRANSPLANT
  4. ENALAPRIL MALEATE [Concomitant]
  5. CARDENSIEL [Concomitant]
  6. NEORAL [Suspect]
     Indication: RENAL TRANSPLANT
     Dosage: 110 MG, BID
     Route: 048
     Dates: start: 20040315, end: 20050711

REACTIONS (12)
  - BLOOD CREATININE INCREASED [None]
  - BLOOD UREA INCREASED [None]
  - DRUG INTERACTION [None]
  - DRUG LEVEL BELOW THERAPEUTIC [None]
  - HAEMOGLOBIN DECREASED [None]
  - HALLUCINATION [None]
  - HEADACHE [None]
  - KIDNEY TRANSPLANT REJECTION [None]
  - NAUSEA [None]
  - PYELONEPHRITIS [None]
  - TRANSPLANT REJECTION [None]
  - VOMITING [None]
